FAERS Safety Report 9978406 (Version 1)
Quarter: 2014Q1

REPORT INFORMATION
  Report Type: Report from Study
  Country: US (occurrence: US)
  Receive Date: 20140306
  Receipt Date: 20140306
  Transmission Date: 20141002
  Serious: No
  Sender: FDA-Public Use
  Company Number: US-ABBVIE-13P-163-1171453-00

PATIENT
  Age: 55 Year
  Sex: Female

DRUGS (4)
  1. HUMIRA [Suspect]
     Indication: PSORIASIS
     Dates: start: 20131011
  2. METOPROLOL [Concomitant]
     Indication: PALPITATIONS
  3. HYDROXYZINE [Concomitant]
     Indication: PRURITUS
  4. CLOBETASOL [Concomitant]
     Indication: ECZEMA

REACTIONS (3)
  - Lymphadenopathy [Not Recovered/Not Resolved]
  - Tooth disorder [Not Recovered/Not Resolved]
  - Nasopharyngitis [Not Recovered/Not Resolved]
